FAERS Safety Report 8666452 (Version 6)
Quarter: 2012Q4

REPORT INFORMATION
  Report Type: 
  Country: GB (occurrence: GB)
  Receive Date: 20120716
  Receipt Date: 20121030
  Transmission Date: 20130627
  Serious: Yes (Death, Congenital Anomaly)
  Sender: FDA-Public Use
  Company Number: GB-WATSON-2012-13355

PATIENT
  Age: 1 Hour
  Sex: Male
  Weight: 2.3 kg

DRUGS (2)
  1. LAMOTRIGINE (UNKNOWN) [Suspect]
     Indication: EPILEPSY
     Dosage: 300 mg, daily
     Route: 064
     Dates: start: 201008
  2. FOLIC ACID [Concomitant]
     Indication: PRODUCT USED FOR UNKNOWN INDICATION
     Dosage: 5 mg, daily
     Route: 064
     Dates: start: 201008

REACTIONS (5)
  - Renal aplasia [Fatal]
  - Anal atresia [Fatal]
  - Polydactyly [Fatal]
  - Foetal exposure during pregnancy [Unknown]
  - Pulmonary hypoplasia [Unknown]
